FAERS Safety Report 15950082 (Version 5)
Quarter: 2020Q4

REPORT INFORMATION
  Report Type: Report from Study
  Country: US (occurrence: US)
  Receive Date: 20190212
  Receipt Date: 20201203
  Transmission Date: 20210113
  Serious: Yes (Hospitalization)
  Sender: FDA-Public Use
  Company Number: US-ROCHE-2257659

PATIENT
  Age: 66 Year
  Sex: Male
  Weight: 144.7 kg

DRUGS (12)
  1. ZYRTEC (UNITED STATES) [Concomitant]
  2. ALOE VERA [Concomitant]
     Active Substance: ALOE VERA LEAF
  3. GINGER. [Concomitant]
     Active Substance: GINGER
  4. ATEZOLIZUMAB. [Suspect]
     Active Substance: ATEZOLIZUMAB
     Indication: GENITOURINARY TRACT NEOPLASM
     Dosage: DATE OF MOST RECENT DOSE PRIOR TO EVENT ONSET: 05/NOV/2018 (CYCLE 3 DAY 1)?1200 MG IV OVER 60 MINUTE
     Route: 042
     Dates: start: 20180921
  5. ATEZOLIZUMAB. [Suspect]
     Active Substance: ATEZOLIZUMAB
     Indication: BLADDER CANCER
  6. CHOLECALCIFEROL [Concomitant]
     Active Substance: CHOLECALCIFEROL
  7. TURMERIC ROOT EXTRACT [Concomitant]
     Active Substance: TURMERIC
  8. CETIRIZINE [Concomitant]
     Active Substance: CETIRIZINE HYDROCHLORIDE
  9. TAMSULOSIN [Concomitant]
     Active Substance: TAMSULOSIN
  10. GLUCOSAMINE [Concomitant]
     Active Substance: GLUCOSAMINE
  11. CRANBERRY. [Concomitant]
     Active Substance: CRANBERRY
  12. OXYBUTYNIN. [Concomitant]
     Active Substance: OXYBUTYNIN CHLORIDE

REACTIONS (10)
  - Glucose tolerance impaired [Not Recovered/Not Resolved]
  - Duodenal ulcer [Recovered/Resolved]
  - Oesophagitis [Recovered/Resolved]
  - Abdominal pain [Recovered/Resolved]
  - Vomiting [Recovered/Resolved]
  - Atrial fibrillation [Recovered/Resolved]
  - Acidosis [Recovered/Resolved]
  - Leukocytosis [Recovered/Resolved]
  - Nausea [Recovered/Resolved]
  - Hyperglycaemia [Not Recovered/Not Resolved]

NARRATIVE: CASE EVENT DATE: 20181123
